FAERS Safety Report 25952164 (Version 1)
Quarter: 2025Q4

REPORT INFORMATION
  Report Type: Report from Study
  Country: US (occurrence: US)
  Receive Date: 20251023
  Receipt Date: 20251023
  Transmission Date: 20260117
  Serious: Yes (Other)
  Sender: GILEAD
  Company Number: US-GILEAD-2025-0733506

PATIENT
  Age: 69 Year
  Sex: Male

DRUGS (2)
  1. LENACAPAVIR [Suspect]
     Active Substance: LENACAPAVIR
     Indication: Product used for unknown indication
     Dosage: 927 MG (3ML) ON DAY 1 WITH 2 300 MG TABLETS, THEN 3 ML
     Route: 058
  2. LENACAPAVIR [Suspect]
     Active Substance: LENACAPAVIR
     Indication: Product used for unknown indication
     Dosage: TWO 300 MG TABLETS
     Route: 065

REACTIONS (4)
  - Loss of consciousness [Recovered/Resolved]
  - Pain [Unknown]
  - Nausea [Unknown]
  - Injection site mass [Unknown]
